FAERS Safety Report 9773248 (Version 2)
Quarter: 2014Q2

REPORT INFORMATION
  Report Type: Spontaneous
  Country: US (occurrence: US)
  Receive Date: 20131219
  Receipt Date: 20140509
  Transmission Date: 20141212
  Serious: Yes (Hospitalization)
  Sender: FDA-Public Use
  Company Number: US-GLAXOSMITHKLINE-A1054173A

PATIENT
  Age: 60 Year
  Sex: Male
  Weight: 172.7 kg

DRUGS (1)
  1. AVANDIA [Suspect]
     Indication: DIABETES MELLITUS
     Dosage: 4MG TWICE PER DAY
     Route: 048
     Dates: start: 200204, end: 200706

REACTIONS (5)
  - Cardiac operation [Unknown]
  - Aortic valve replacement [Unknown]
  - Respiratory failure [Unknown]
  - Cardiac tamponade [Unknown]
  - Cardiac failure congestive [Unknown]
